FAERS Safety Report 20588841 (Version 1)
Quarter: 2022Q1

REPORT INFORMATION
  Report Type: Spontaneous
  Country: NL (occurrence: NL)
  Receive Date: 20220314
  Receipt Date: 20220314
  Transmission Date: 20220424
  Serious: Yes (Other)
  Sender: FDA-Public Use
  Company Number: NL-ABBVIE-21K-114-4138434-00

PATIENT
  Age: 76 Year
  Sex: Female

DRUGS (6)
  1. POLYETHYLENE GLYCOLS [Suspect]
     Active Substance: POLYETHYLENE GLYCOLS
     Indication: Abnormal faeces
     Dosage: 1 UNK, ONCE A DAY
     Route: 065
  2. CARBIDOPA\LEVODOPA [Suspect]
     Active Substance: CARBIDOPA\LEVODOPA
     Indication: Parkinson^s disease
     Dosage: MD: 9 ML, CD: 3.0 ML/H, ED: 2.0 ML, 16 HOURS
     Route: 050
     Dates: start: 20211019, end: 202110
  3. CARBIDOPA\LEVODOPA [Suspect]
     Active Substance: CARBIDOPA\LEVODOPA
     Dosage: MD: 10 ML, CD: 3.2 ML/H, ED: 2.0 ML, 16 HOURS
     Route: 050
     Dates: start: 202110
  4. EUTHYROX [Concomitant]
     Active Substance: LEVOTHYROXINE SODIUM
     Indication: Thyroid disorder
     Dosage: 1 UNK, ONCE A DAY
     Route: 065
  5. ENALAPRIL MALEATE [Concomitant]
     Active Substance: ENALAPRIL MALEATE
     Indication: Blood pressure measurement
     Dosage: 1 UNK, ONCE A DAY
     Route: 065
  6. PANTOPRAZOLE [Concomitant]
     Active Substance: PANTOPRAZOLE
     Indication: Gastrooesophageal reflux disease
     Dosage: 2 UNK, ONCE A DAY
     Route: 065

REACTIONS (21)
  - Neuropathy peripheral [Not Recovered/Not Resolved]
  - Restlessness [Recovering/Resolving]
  - Urinary tract infection [Not Recovered/Not Resolved]
  - Freezing phenomenon [Not Recovered/Not Resolved]
  - Diarrhoea [Recovered/Resolved]
  - Walking aid user [Unknown]
  - On and off phenomenon [Recovering/Resolving]
  - Gait disturbance [Recovering/Resolving]
  - Speech disorder [Recovering/Resolving]
  - Nocturia [Recovering/Resolving]
  - Tremor [Recovering/Resolving]
  - Peripheral coldness [Recovering/Resolving]
  - Somnolence [Recovering/Resolving]
  - Stoma site oedema [Recovered/Resolved]
  - Muscle spasms [Not Recovered/Not Resolved]
  - Balance disorder [Not Recovered/Not Resolved]
  - Decreased activity [Not Recovered/Not Resolved]
  - Peripheral coldness [Not Recovered/Not Resolved]
  - Paraesthesia [Not Recovered/Not Resolved]
  - Sensory disturbance [Not Recovered/Not Resolved]
  - Therapeutic product effect incomplete [Not Recovered/Not Resolved]

NARRATIVE: CASE EVENT DATE: 20211001
